FAERS Safety Report 17600248 (Version 1)
Quarter: 2020Q1

REPORT INFORMATION
  Report Type: Report from Study
  Country: GB (occurrence: GB)
  Receive Date: 20200330
  Receipt Date: 20200330
  Transmission Date: 20200409
  Serious: Yes (Other)
  Sender: FDA-Public Use
  Company Number: GB-MYLANLABS-2020M1032514

PATIENT
  Age: 63 Year
  Sex: Female

DRUGS (19)
  1. DOCETAXEL. [Suspect]
     Active Substance: DOCETAXEL
     Dosage: UNK UNK, QD
     Route: 042
     Dates: start: 20150622, end: 20150622
  2. PERTUZUMAB. [Suspect]
     Active Substance: PERTUZUMAB
     Indication: BREAST CANCER
     Dosage: UNK UNK, QD
     Route: 042
     Dates: start: 20150520, end: 20150520
  3. PERTUZUMAB. [Suspect]
     Active Substance: PERTUZUMAB
     Dosage: 420 MILLIGRAM, Q3W
     Route: 042
     Dates: start: 20150622
  4. AMOXYCILLIN                        /00249601/ [Concomitant]
     Active Substance: AMOXICILLIN
     Indication: CATHETER SITE ERYTHEMA
     Dosage: UNK
     Route: 048
     Dates: start: 20150929
  5. FLUCLOXACILLIN [Concomitant]
     Active Substance: FLUCLOXACILLIN
     Indication: CELLULITIS
     Dosage: UNK
     Route: 048
     Dates: start: 20160122, end: 20160203
  6. TAZOCIN [Concomitant]
     Active Substance: PIPERACILLIN SODIUM\TAZOBACTAM SODIUM
     Indication: DEVICE RELATED INFECTION
     Dosage: 4.5 MILLIGRAM (0.33 DAY)
     Route: 042
     Dates: start: 20151005, end: 20151012
  7. TAZOCIN [Concomitant]
     Active Substance: PIPERACILLIN SODIUM\TAZOBACTAM SODIUM
     Indication: INFECTION
     Dosage: UNK
     Route: 042
     Dates: start: 20151125, end: 20151128
  8. FLUCLOXACILLIN [Concomitant]
     Active Substance: FLUCLOXACILLIN
     Indication: CATHETER SITE ERYTHEMA
     Dosage: UNK
     Route: 048
     Dates: start: 20150929
  9. TRASTUZUMAB. [Suspect]
     Active Substance: TRASTUZUMAB
     Indication: BREAST CANCER
     Dosage: UNK UNK, QD
     Route: 042
     Dates: start: 20150521, end: 20150521
  10. DOCETAXEL. [Suspect]
     Active Substance: DOCETAXEL
     Indication: BREAST CANCER
     Dosage: UNK UNK, QD
     Route: 042
     Dates: start: 20150522, end: 20150522
  11. RIVAROXABAN [Concomitant]
     Active Substance: RIVAROXABAN
     Indication: DEVICE RELATED INFECTION
     Dosage: 15 MILLIGRAM, BID (0.5 DAY)
     Route: 048
     Dates: start: 20151014, end: 20151103
  12. TRASTUZUMAB. [Suspect]
     Active Substance: TRASTUZUMAB
     Dosage: 399 MILLIGRAM, Q3W
     Route: 042
     Dates: start: 20150622
  13. TAZOCIN [Concomitant]
     Active Substance: PIPERACILLIN SODIUM\TAZOBACTAM SODIUM
     Indication: SEPSIS
     Dosage: 4.5 GRAM
     Route: 042
     Dates: start: 20160210, end: 20160210
  14. AMOXYCILLIN                        /00249601/ [Concomitant]
     Active Substance: AMOXICILLIN
     Indication: CELLULITIS
     Dosage: UNK
     Route: 048
     Dates: start: 20160122, end: 20160203
  15. CO-AMOXICLAV                       /00756801/ [Concomitant]
     Active Substance: AMOXICILLIN\CLAVULANIC ACID
     Indication: PRODUCTIVE COUGH
     Dosage: 625 MILLIGRAM
     Route: 048
     Dates: start: 20151123, end: 20151124
  16. DOCETAXEL. [Suspect]
     Active Substance: DOCETAXEL
     Dosage: UNK UNK, Q3W
     Route: 042
     Dates: start: 20150714
  17. STREPTOKINASE [Concomitant]
     Active Substance: STREPTOKINASE
     Indication: DEVICE RELATED INFECTION
     Dosage: 250000 INTERNATIONAL UNIT
     Route: 042
     Dates: start: 20151005, end: 20151014
  18. DALTEPARIN [Concomitant]
     Active Substance: DALTEPARIN
     Indication: DEVICE RELATED INFECTION
     Dosage: UNK
     Route: 058
     Dates: start: 20151005, end: 20151014
  19. RIVAROXABAN [Concomitant]
     Active Substance: RIVAROXABAN
     Dosage: 20 MILLIGRAM, QD
     Route: 048
     Dates: start: 20151104

REACTIONS (4)
  - Alopecia [Recovered/Resolved]
  - Dyspnoea [Unknown]
  - Neutropenia [Recovered/Resolved]
  - Diarrhoea [Recovered/Resolved]

NARRATIVE: CASE EVENT DATE: 20150714
